FAERS Safety Report 7978770-5 (Version None)
Quarter: 2011Q4

REPORT INFORMATION
  Report Type: 
  Country: None (occurrence: None)
  Receive Date: 20111207
  Receipt Date: 20111123
  Transmission Date: 20120403
  Serious: Yes (Hospitalization, Other)
  Sender: FDA-Public Use
  Company Number: 2009AL004361

PATIENT
  Age: 40 Year
  Sex: Male
  Weight: 92.9874 kg

DRUGS (28)
  1. DIGOXIN [Suspect]
     Indication: CARDIAC DISORDER
     Dosage: 0.25 MG;QD;PO
     Route: 048
     Dates: start: 20030507, end: 20090916
  2. ALLOPURINOL [Concomitant]
  3. APAP TAB [Concomitant]
  4. AUGMENTIN [Concomitant]
  5. ALTACE [Concomitant]
  6. DIOVAN [Concomitant]
  7. TESSALON [Concomitant]
  8. TOPROL-XL [Concomitant]
  9. DEMADEX [Concomitant]
  10. POTASSIUM CHLORIDE [Concomitant]
  11. ZOCOR [Concomitant]
  12. ZOLPIDEM [Concomitant]
  13. MULTI-VITAMINS [Concomitant]
  14. ACCUPRIL [Concomitant]
  15. LASIX [Concomitant]
  16. ZANTAC [Concomitant]
  17. PLAVIX [Concomitant]
  18. NORVASC [Concomitant]
  19. COUMADIN [Concomitant]
  20. HEPARIN [Concomitant]
  21. FOLTX [Concomitant]
  22. DARVOCET [Concomitant]
  23. ASPIRIN [Concomitant]
  24. LUNESTA [Concomitant]
  25. CIALIS [Concomitant]
  26. VOLTAREN [Concomitant]
  27. COREG [Concomitant]
  28. VIAGRA [Concomitant]

REACTIONS (57)
  - BLOOD URINE PRESENT [None]
  - HEART RATE IRREGULAR [None]
  - MULTIPLE INJURIES [None]
  - ATRIAL FLUTTER [None]
  - THERAPY CESSATION [None]
  - CHEST DISCOMFORT [None]
  - SWELLING FACE [None]
  - GOUT [None]
  - EPIGASTRIC DISCOMFORT [None]
  - RENAL IMPAIRMENT [None]
  - MYOCARDIAL INFARCTION [None]
  - DRUG INEFFECTIVE [None]
  - DISCOMFORT [None]
  - PAIN IN EXTREMITY [None]
  - VISION BLURRED [None]
  - EYE IRRITATION [None]
  - REFUSAL OF TREATMENT BY PATIENT [None]
  - BURSITIS [None]
  - ERUCTATION [None]
  - ATRIAL FIBRILLATION [None]
  - MENTAL DISORDER [None]
  - MIOSIS [None]
  - CHEST PAIN [None]
  - ISCHAEMIC CARDIOMYOPATHY [None]
  - INTERNATIONAL NORMALISED RATIO INCREASED [None]
  - DIZZINESS [None]
  - EMOTIONAL DISORDER [None]
  - FATIGUE [None]
  - WEIGHT INCREASED [None]
  - MUSCULOSKELETAL PAIN [None]
  - VASCULAR GRAFT OCCLUSION [None]
  - VIITH NERVE PARALYSIS [None]
  - ANXIETY [None]
  - CORONARY ARTERY ANEURYSM [None]
  - ERECTILE DYSFUNCTION [None]
  - DIPLOPIA [None]
  - EYE MOVEMENT DISORDER [None]
  - CONTUSION [None]
  - TRICUSPID VALVE INCOMPETENCE [None]
  - CORONARY ARTERY DISEASE [None]
  - INSOMNIA [None]
  - ECONOMIC PROBLEM [None]
  - HYPOAESTHESIA [None]
  - DYSPNOEA [None]
  - VISUAL IMPAIRMENT [None]
  - PAIN [None]
  - VENTRICULAR TACHYCARDIA [None]
  - MITRAL VALVE CALCIFICATION [None]
  - DEVICE BATTERY ISSUE [None]
  - ESSENTIAL HYPERTENSION [None]
  - HYPERLIPIDAEMIA [None]
  - HYPOPHAGIA [None]
  - ARTERIOSCLEROSIS [None]
  - PLEURISY [None]
  - MITRAL VALVE INCOMPETENCE [None]
  - JOINT RANGE OF MOTION DECREASED [None]
  - CARDIAC FAILURE CONGESTIVE [None]
